FAERS Safety Report 15932446 (Version 2)
Quarter: 2019Q2

REPORT INFORMATION
  Report Type: Spontaneous
  Country: US (occurrence: US)
  Receive Date: 20190207
  Receipt Date: 20190515
  Transmission Date: 20190711
  Serious: Yes (Hospitalization, Other)
  Sender: FDA-Public Use
  Company Number: US-ASTRAZENECA-2019SE18139

PATIENT
  Age: 19700 Day
  Sex: Female
  Weight: 95.7 kg

DRUGS (24)
  1. NEXIUM [Suspect]
     Active Substance: ESOMEPRAZOLE MAGNESIUM
     Indication: GASTROOESOPHAGEAL REFLUX DISEASE
     Route: 048
     Dates: start: 20060510, end: 20171008
  2. LISINOPRIL. [Concomitant]
     Active Substance: LISINOPRIL
  3. CETRIZINE [Concomitant]
     Active Substance: CETIRIZINE HYDROCHLORIDE
  4. PROCHLORPERAZINE. [Concomitant]
     Active Substance: PROCHLORPERAZINE
  5. LEVOTHYROXINE. [Concomitant]
     Active Substance: LEVOTHYROXINE
  6. ACARBOSE. [Concomitant]
     Active Substance: ACARBOSE
  7. NEXIUM [Suspect]
     Active Substance: ESOMEPRAZOLE MAGNESIUM
     Indication: GASTROOESOPHAGEAL REFLUX DISEASE
     Route: 048
     Dates: start: 20130603, end: 20140429
  8. OMEPRAZOLE, SODIUM BICARBONATE [Suspect]
     Active Substance: OMEPRAZOLE\SODIUM BICARBONATE
     Route: 065
  9. METFORMIN [Concomitant]
     Active Substance: METFORMIN HYDROCHLORIDE
  10. ETODOLAC. [Concomitant]
     Active Substance: ETODOLAC
  11. LORAZEPAM. [Concomitant]
     Active Substance: LORAZEPAM
  12. RANITIDINE. [Suspect]
     Active Substance: RANITIDINE
     Route: 065
  13. LANTUS [Concomitant]
     Active Substance: INSULIN GLARGINE
  14. CYMBALTA [Concomitant]
     Active Substance: DULOXETINE HYDROCHLORIDE
  15. LORAZEPAM. [Concomitant]
     Active Substance: LORAZEPAM
  16. FUROSEMIDE. [Concomitant]
     Active Substance: FUROSEMIDE
  17. TRAZODONE [Concomitant]
     Active Substance: TRAZODONE HYDROCHLORIDE
  18. NEXIUM [Suspect]
     Active Substance: ESOMEPRAZOLE MAGNESIUM
     Indication: GASTROOESOPHAGEAL REFLUX DISEASE
     Route: 048
     Dates: start: 20080408, end: 20100804
  19. NEXIUM [Suspect]
     Active Substance: ESOMEPRAZOLE MAGNESIUM
     Indication: GASTROOESOPHAGEAL REFLUX DISEASE
     Dosage: GENERIC
     Route: 065
     Dates: start: 20170224, end: 20170823
  20. BACLOFEN. [Concomitant]
     Active Substance: BACLOFEN
  21. GABAPENTIN. [Concomitant]
     Active Substance: GABAPENTIN
  22. SIMVASTATIN. [Concomitant]
     Active Substance: SIMVASTATIN
  23. ABILIFY [Concomitant]
     Active Substance: ARIPIPRAZOLE
  24. VOLTAREN [Concomitant]
     Active Substance: DICLOFENAC SODIUM

REACTIONS (1)
  - Chronic kidney disease [Not Recovered/Not Resolved]

NARRATIVE: CASE EVENT DATE: 20141021
